FAERS Safety Report 16768224 (Version 1)
Quarter: 2019Q4

REPORT INFORMATION
  Report Type: Spontaneous
  Country: US (occurrence: US)
  Receive Date: 20190903
  Receipt Date: 20190903
  Transmission Date: 20200122
  Serious: Yes (Hospitalization, Disabling)
  Sender: FDA-Public Use
  Company Number: None

PATIENT
  Age: 6 Year
  Sex: Female
  Weight: 54 kg

DRUGS (4)
  1. MAGNESIUM SUPPLEMENT [Concomitant]
  2. MONTELUKAST [Suspect]
     Active Substance: MONTELUKAST SODIUM
     Indication: HYPERSENSITIVITY
     Dosage: ?          QUANTITY:1 TABLET(S);?
     Route: 048
     Dates: start: 20040730, end: 20070719
  3. CLARITIN [Concomitant]
     Active Substance: LORATADINE
  4. MULTIVITAMIN [Concomitant]
     Active Substance: VITAMINS

REACTIONS (6)
  - Tic [None]
  - Tachycardia [None]
  - Palpitations [None]
  - Seizure [None]
  - Paediatric autoimmune neuropsychiatric disorders associated with streptococcal infection [None]
  - Mental disorder [None]

NARRATIVE: CASE EVENT DATE: 20040830
